FAERS Safety Report 21322828 (Version 1)
Quarter: 2022Q3

REPORT INFORMATION
  Report Type: Spontaneous
  Country: US (occurrence: None)
  Receive Date: 20220909
  Receipt Date: 20220909
  Transmission Date: 20221027
  Serious: Yes (Other)
  Sender: FDA-Public Use
  Company Number: None

PATIENT
  Age: 41 Year
  Sex: Female
  Weight: 78.9 kg

DRUGS (1)
  1. FERUMOXYTOL [Suspect]
     Active Substance: FERUMOXYTOL
     Indication: Anaemia
     Dosage: OTHER FREQUENCY : ONCE;?
     Route: 040
     Dates: start: 20220902, end: 20220902

REACTIONS (5)
  - Maternal exposure during pregnancy [None]
  - Dyspnoea [None]
  - Dyspnoea [None]
  - Foetal heart rate abnormal [None]
  - Foetal death [None]

NARRATIVE: CASE EVENT DATE: 20220908
